FAERS Safety Report 7449989-7 (Version None)
Quarter: 2011Q2

REPORT INFORMATION
  Report Type: 
  Country: None (occurrence: None)
  Receive Date: 20110421
  Receipt Date: 20110412
  Transmission Date: 20111010
  Serious: Yes (Hospitalization, Other)
  Sender: FDA-Public Use
  Company Number: 2010SP056520

PATIENT
  Age: 24 Year
  Sex: Female
  Weight: 114.3065 kg

DRUGS (1)
  1. NUVARING [Suspect]
     Indication: CONTRACEPTION
     Dosage: QM
     Dates: start: 20051219, end: 20080122

REACTIONS (10)
  - HYPOAESTHESIA [None]
  - INJURY [None]
  - PANIC ATTACK [None]
  - DYSKINESIA [None]
  - SUPERIOR SAGITTAL SINUS THROMBOSIS [None]
  - GRAND MAL CONVULSION [None]
  - PRESYNCOPE [None]
  - PNEUMONIA [None]
  - HYPERGLYCAEMIA [None]
  - TACHYCARDIA [None]
